FAERS Safety Report 7309504-5 (Version None)
Quarter: 2011Q1

REPORT INFORMATION
  Report Type: 
  Country: None (occurrence: None)
  Receive Date: 20110223
  Receipt Date: 20110218
  Transmission Date: 20110831
  Serious: Yes (Hospitalization)
  Sender: FDA-Public Use
  Company Number: GR-GILEAD-2011-0036345

PATIENT
  Age: 70 Year
  Sex: Male

DRUGS (3)
  1. CLOPIDOGREL [Concomitant]
  2. RANEXA [Suspect]
     Indication: CARDIAC FAILURE
     Dates: end: 20110101
  3. RANEXA [Suspect]
     Indication: BLOOD CREATINE PHOSPHOKINASE INCREASED

REACTIONS (1)
  - RHABDOMYOLYSIS [None]
